FAERS Safety Report 23600328 (Version 1)
Quarter: 2024Q1

REPORT INFORMATION
  Report Type: Spontaneous
  Country: IR (occurrence: IR)
  Receive Date: 20240306
  Receipt Date: 20240306
  Transmission Date: 20240410
  Serious: Yes (Death, Life-Threatening, Hospitalization, Other)
  Sender: FDA-Public Use
  Company Number: IR-RISINGPHARMA-IR-2024RISLIT00059

PATIENT
  Age: 51 Year
  Sex: Female

DRUGS (4)
  1. DICLOFENAC SODIUM [Suspect]
     Active Substance: DICLOFENAC\DICLOFENAC SODIUM
     Indication: Procedural pain
     Route: 054
  2. CEPHALEXIN [Concomitant]
     Active Substance: CEPHALEXIN
     Indication: Product used for unknown indication
     Route: 065
  3. HEPARIN [Concomitant]
     Active Substance: HEPARIN SODIUM
     Indication: Product used for unknown indication
     Dosage: AMPOULES
     Route: 065
  4. MUCILLIUM [Concomitant]
     Indication: Product used for unknown indication
     Route: 065

REACTIONS (18)
  - Cardiac arrest [Fatal]
  - Acute kidney injury [Unknown]
  - Depressed level of consciousness [Unknown]
  - Delirium [Unknown]
  - Metabolic acidosis [Unknown]
  - Constipation [Unknown]
  - Glossitis [Unknown]
  - Sinus tachycardia [Unknown]
  - Abdominal distension [Unknown]
  - Toxicity to various agents [Unknown]
  - Blood pressure increased [Unknown]
  - Organ failure [Unknown]
  - Swollen tongue [Unknown]
  - Rash [Unknown]
  - Vomiting [Unknown]
  - Nausea [Unknown]
  - Overdose [Unknown]
  - Product use issue [Unknown]
